FAERS Safety Report 19797325 (Version 1)
Quarter: 2021Q3

REPORT INFORMATION
  Report Type: Spontaneous
  Country: US (occurrence: US)
  Receive Date: 20210905
  Receipt Date: 20210905
  Transmission Date: 20211014
  Serious: Yes (Other)
  Sender: FDA-Public Use
  Company Number: None

PATIENT
  Age: 28 Year
  Sex: Female
  Weight: 103.23 kg

DRUGS (23)
  1. MEDIPORT [Concomitant]
  2. 0.9% SALINE [Concomitant]
  3. PANTOPRAZOLE SODIUM EC [Concomitant]
  4. RIZATRIPTAN. [Concomitant]
     Active Substance: RIZATRIPTAN
  5. ZYRTEC [Concomitant]
     Active Substance: CETIRIZINE HYDROCHLORIDE
  6. DOTERRA [Concomitant]
  7. BUTALBITAL, ACETAMINOPHEN, AND CAFFEINE [Concomitant]
     Active Substance: ACETAMINOPHEN\BUTALBITAL\CAFFEINE
  8. EMGALITY [Suspect]
     Active Substance: GALCANEZUMAB-GNLM
     Indication: MIGRAINE
     Dosage: ?          QUANTITY:1 INJECTION(S);OTHER FREQUENCY:EVERY 30 DAYS;?
     Route: 058
     Dates: start: 20210505
  9. DIVALPROEX [Concomitant]
     Active Substance: DIVALPROEX SODIUM
  10. MIDODRINE [Concomitant]
     Active Substance: MIDODRINE
  11. PYRIDOSTIGMINE BROMIDE. [Concomitant]
     Active Substance: PYRIDOSTIGMINE BROMIDE
  12. PULMICORT FLEXHALER [Concomitant]
     Active Substance: BUDESONIDE
  13. DIGESTZEN [Concomitant]
  14. ATENOLOL. [Concomitant]
     Active Substance: ATENOLOL
  15. TRIAMCINOLONE ACETONIDE. [Concomitant]
     Active Substance: TRIAMCINOLONE ACETONIDE
  16. HEPARIN [Concomitant]
     Active Substance: HEPARIN SODIUM
  17. 0.9% SODIUM CHLORIDE [Concomitant]
     Active Substance: SODIUM CHLORIDE
  18. MEDROXYPROGESTERONE [Concomitant]
     Active Substance: MEDROXYPROGESTERONE
  19. PROCRIT [Concomitant]
     Active Substance: ERYTHROPOIETIN
  20. ONDANSETRON ODT [Concomitant]
     Active Substance: ONDANSETRON
  21. NORTHERA [Concomitant]
     Active Substance: DROXIDOPA
  22. METOCLOPRAMIDE. [Concomitant]
     Active Substance: METOCLOPRAMIDE
  23. LEVOTHYROXINE. [Concomitant]
     Active Substance: LEVOTHYROXINE

REACTIONS (2)
  - Hypersensitivity [None]
  - Contusion [None]

NARRATIVE: CASE EVENT DATE: 20210805
